FAERS Safety Report 8902402 (Version 2)
Quarter: 2013Q1

REPORT INFORMATION
  Report Type: Spontaneous
  Country: JP (occurrence: JP)
  Receive Date: 20121112
  Receipt Date: 20130213
  Transmission Date: 20140127
  Serious: Yes (Hospitalization)
  Sender: FDA-Public Use
  Company Number: JP-ELI_LILLY_AND_COMPANY-JP201210000860

PATIENT
  Age: 83 Year
  Sex: Female

DRUGS (3)
  1. FORTEO [Suspect]
     Dosage: UNK
     Route: 058
     Dates: start: 20111026, end: 20121021
  2. FORTEO [Suspect]
     Dosage: UNK
     Route: 058
     Dates: start: 20121025
  3. INFLUENZA VACCINE [Concomitant]
     Indication: ANTIVIRAL PROPHYLAXIS

REACTIONS (7)
  - Mallory-Weiss syndrome [Unknown]
  - Diarrhoea [Unknown]
  - Vomiting [Unknown]
  - Occult blood positive [Unknown]
  - Back pain [Not Recovered/Not Resolved]
  - Injection site bruising [Unknown]
  - Influenza [Unknown]
